FAERS Safety Report 23647557 (Version 1)
Quarter: 2024Q1

REPORT INFORMATION
  Report Type: Spontaneous
  Country: IN (occurrence: IN)
  Receive Date: 20240319
  Receipt Date: 20240319
  Transmission Date: 20240409
  Serious: Yes (Other)
  Sender: FDA-Public Use
  Company Number: IN-002147023-NVSC2023IN280335

PATIENT
  Age: 53 Year
  Sex: Female

DRUGS (1)
  1. ELTROMBOPAG OLAMINE [Suspect]
     Active Substance: ELTROMBOPAG OLAMINE
     Indication: Aplastic anaemia
     Dosage: 50 MG (ONCE DAILY)
     Route: 048

REACTIONS (3)
  - Haemoglobin abnormal [Unknown]
  - Blood creatine abnormal [Unknown]
  - Pyrexia [Unknown]
